FAERS Safety Report 7790471-5 (Version None)
Quarter: 2011Q3

REPORT INFORMATION
  Report Type: 
  Country: None (occurrence: None)
  Receive Date: 20110930
  Receipt Date: 20110910
  Transmission Date: 20111222
  Serious: Yes (Hospitalization, Other)
  Sender: FDA-Public Use
  Company Number: PHEH2004US01658

PATIENT
  Sex: Male

DRUGS (21)
  1. ACYCLOVIR [Concomitant]
  2. STRESSTABS [Concomitant]
  3. LASIX [Concomitant]
  4. ARANESP [Concomitant]
  5. SIMULECT [Suspect]
     Indication: RENAL TRANSPLANT
     Dosage: UNK
     Route: 042
     Dates: start: 20021015, end: 20021015
  6. BMS224818 [Concomitant]
  7. SYNTHROID [Concomitant]
  8. ALLOPURINOL [Concomitant]
  9. PREDNISONE [Suspect]
     Dosage: 5 MG, UNK
     Route: 048
     Dates: start: 20021202
  10. MYCOPHENOLATE MOFETIL (CELLCEPT) [Suspect]
     Dosage: NOT REPORTED
     Route: 048
     Dates: end: 20031101
  11. ORTHOCLONE OKT3 [Suspect]
     Indication: RENAL TRANSPLANT
     Dosage: 5 MG, UNK
     Route: 048
     Dates: start: 20021115, end: 20021124
  12. POTASSIUM PHOSPHATES [Concomitant]
  13. MYCOPHENOLATE MOFETIL (CELLCEPT) [Suspect]
     Indication: RENAL TRANSPLANT
     Dosage: 1500 MG, QD
     Route: 048
     Dates: start: 20021016
  14. PROGRAF [Suspect]
     Indication: RENAL TRANSPLANT
     Dosage: UNK
     Route: 048
     Dates: start: 20021202
  15. VASOTEC [Concomitant]
  16. BICITRA [Concomitant]
  17. SIMULECT [Suspect]
     Dosage: UNK
     Route: 042
     Dates: start: 20021019, end: 20021019
  18. PROTONIX [Concomitant]
  19. VALGANCICLOVIR [Concomitant]
  20. DAPSONE [Concomitant]
  21. FOLIC ACID [Concomitant]

REACTIONS (19)
  - OEDEMA PERIPHERAL [None]
  - TUBULOINTERSTITIAL NEPHRITIS [None]
  - NECK MASS [None]
  - PNEUMONIA [None]
  - HEADACHE [None]
  - BLOOD CREATININE INCREASED [None]
  - DIARRHOEA [None]
  - TONGUE PARALYSIS [None]
  - PYREXIA [None]
  - CELLULITIS [None]
  - NIGHT SWEATS [None]
  - BONE PAIN [None]
  - EPSTEIN-BARR VIRUS INFECTION [None]
  - URINARY TRACT INFECTION ENTEROCOCCAL [None]
  - EPSTEIN-BARR VIRUS ASSOCIATED LYMPHOPROLIFERATIVE DISORDER [None]
  - KIDNEY TRANSPLANT REJECTION [None]
  - METABOLIC DISORDER [None]
  - WEIGHT DECREASED [None]
  - ANAEMIA [None]
